APPROVED DRUG PRODUCT: TAGRISSO
Active Ingredient: OSIMERTINIB MESYLATE
Strength: EQ 40MG BASE
Dosage Form/Route: TABLET;ORAL
Application: N208065 | Product #001
Applicant: ASTRAZENECA PHARMACEUTICALS LP
Approved: Nov 13, 2015 | RLD: Yes | RS: No | Type: RX

PATENTS:
Patent 9732058 | Expires: Jul 25, 2032
Patent 8946235 | Expires: Aug 8, 2032
Patent 10183020 | Expires: Jan 2, 2035
Patent 9732058 | Expires: Jul 25, 2032
Patent 8946235 | Expires: Aug 8, 2032
Patent 8946235 | Expires: Aug 8, 2032
Patent 9732058 | Expires: Jul 25, 2032
Patent 10183020 | Expires: Jan 2, 2035
Patent 12465608 | Expires: Nov 26, 2042
Patent 8946235 | Expires: Aug 8, 2032
Patent 9732058 | Expires: Jul 25, 2032
Patent 10183020 | Expires: Jan 2, 2035
Patent 10183020 | Expires: Jan 2, 2035
Patent 8946235 | Expires: Aug 8, 2032
Patent 9732058 | Expires: Jul 25, 2032
Patent 10183020 | Expires: Jan 2, 2035
Patent 11524951 | Expires: Jul 25, 2032

EXCLUSIVITY:
Code: I-941 | Date: Feb 16, 2027
Code: I-952 | Date: Sep 25, 2027
Code: ODE-337 | Date: Dec 18, 2027